FAERS Safety Report 5145931-2 (Version None)
Quarter: 2006Q4

REPORT INFORMATION
  Report Type: 
  Country: None (occurrence: None)
  Receive Date: 20061108
  Receipt Date: 20061101
  Transmission Date: 20070319
  Serious: Yes (Other)
  Sender: FDA-Public Use
  Company Number: 2006UW21393

PATIENT
  Age: 46 Year
  Sex: Female

DRUGS (11)
  1. MERREM [Suspect]
     Route: 042
  2. CIPRO [Suspect]
     Route: 048
  3. ALLOPURINOL [Concomitant]
     Route: 048
  4. AMSA PD [Concomitant]
     Route: 042
  5. AZTREONAM [Concomitant]
  6. CYTARABINE [Concomitant]
     Route: 042
  7. GRANISETRON [Concomitant]
     Route: 042
  8. ITRACONAZOLE [Concomitant]
     Route: 048
  9. TOBRAMYCIN [Concomitant]
     Route: 042
  10. TRANEXAMIC ACID [Concomitant]
     Route: 042
  11. VANCOMYCIN [Concomitant]
     Route: 042

REACTIONS (4)
  - FACE OEDEMA [None]
  - PRURITUS [None]
  - RASH MACULO-PAPULAR [None]
  - SKIN EXFOLIATION [None]
